FAERS Safety Report 6533377-1 (Version None)
Quarter: 2010Q1

REPORT INFORMATION
  Report Type: 
  Country: None (occurrence: None)
  Receive Date: 20100111
  Receipt Date: 20100104
  Transmission Date: 20100710
  Serious: Yes (Hospitalization)
  Sender: FDA-Public Use
  Company Number: US-ELI_LILLY_AND_COMPANY-US200911003514

PATIENT
  Sex: Female

DRUGS (12)
  1. FORTEO [Suspect]
     Dosage: 20 UG, DAILY (1/D)
     Dates: start: 20090901
  2. ARICEPT [Concomitant]
  3. CARDIZEM [Concomitant]
     Dosage: 30 MG, UNK
  4. LASIX [Concomitant]
     Dosage: 20 MG, UNK
  5. POTASSIUM [Concomitant]
  6. ZOCOR [Concomitant]
     Dosage: 20 MG, UNK
  7. CALCIUM [Concomitant]
  8. OMEPRAZOLE [Concomitant]
     Dosage: 20 MG, UNK
  9. TRAZODONE HCL [Concomitant]
  10. COLACE [Concomitant]
  11. ENABLEX                            /01760401/ [Concomitant]
  12. VITAMIN D [Concomitant]

REACTIONS (2)
  - PAIN [None]
  - SPINAL FRACTURE [None]
